FAERS Safety Report 7740895-7 (Version None)
Quarter: 2011Q3

REPORT INFORMATION
  Report Type: 
  Country: None (occurrence: None)
  Receive Date: 20110909
  Receipt Date: 20110907
  Transmission Date: 20111222
  Serious: Yes (Hospitalization, Other)
  Sender: FDA-Public Use
  Company Number: JP-ABBOTT-10P-087-0693637-00

PATIENT
  Sex: Female
  Weight: 64.3 kg

DRUGS (14)
  1. FOLIC ACID [Concomitant]
     Indication: PRODUCT USED FOR UNKNOWN INDICATION
     Dosage: 5MG QW ON SAT
     Route: 048
     Dates: start: 20100323, end: 20101201
  2. METHOTREXATE [Suspect]
     Indication: RHEUMATOID ARTHRITIS
     Route: 048
     Dates: end: 20101222
  3. SULFASALAZINE [Concomitant]
     Indication: RHEUMATOID ARTHRITIS
     Route: 048
     Dates: start: 20100209, end: 20100324
  4. PITAVASTATIN CALCIUM [Concomitant]
     Indication: PRODUCT USED FOR UNKNOWN INDICATION
     Dosage: 2 MG QD AFTER DINNER
     Route: 048
  5. NIFEDIPINE [Concomitant]
     Indication: PRODUCT USED FOR UNKNOWN INDICATION
     Dosage: 20MG DAILY DOSE
  6. SODIUM GUALENATE HYDRATE/L-GLUTAMINE [Concomitant]
     Indication: PRODUCT USED FOR UNKNOWN INDICATION
     Dosage: 0.5 GRAMS AFTER BREAKFAST
     Route: 048
  7. ENALAPRIL MALEATE [Concomitant]
     Indication: PRODUCT USED FOR UNKNOWN INDICATION
     Dosage: 5 MG BID AFTER BREAKFAST AND DINNER
     Route: 048
  8. HUMIRA [Suspect]
     Indication: RHEUMATOID ARTHRITIS
     Route: 058
     Dates: start: 20100817, end: 20101201
  9. METHOTREXATE [Concomitant]
     Indication: PRODUCT USED FOR UNKNOWN INDICATION
     Dosage: 4 MG ON WED/8AM, 2MG WED 8PM, 2MG ON THURS. 8AM
     Dates: start: 20100323, end: 20101201
  10. ANTITUSSIVE COMBINED DRUG [Concomitant]
     Indication: PRODUCT USED FOR UNKNOWN INDICATION
     Dosage: 1GRAM TID ONLY ON STRONG COUGH
  11. TEMISARTAN [Concomitant]
     Indication: PRODUCT USED FOR UNKNOWN INDICATION
     Dosage: 40 MG QD AFTER BREAKFAST
     Route: 048
  12. LOXOPROFEN SODIUM HYDRATE [Concomitant]
     Indication: PRODUCT USED FOR UNKNOWN INDICATION
     Dosage: 60 MG AFTER BREAKFAST
     Route: 048
  13. PREDNISOLONE [Concomitant]
     Indication: RHEUMATOID ARTHRITIS
     Route: 048
     Dates: start: 20100126, end: 20100316
  14. HERBAL MEDICINE (SHAKUYAKUKANZOTO) [Concomitant]
     Indication: PRODUCT USED FOR UNKNOWN INDICATION
     Dosage: 3.5MG 2H AFTER EACH MEAL

REACTIONS (2)
  - PYREXIA [None]
  - INTERSTITIAL LUNG DISEASE [None]
